FAERS Safety Report 5648406-7 (Version None)
Quarter: 2008Q1

REPORT INFORMATION
  Report Type: 
  Country: None (occurrence: None)
  Receive Date: 20080131
  Receipt Date: 20071029
  Transmission Date: 20080703
  Serious: No
  Sender: FDA-Public Use
  Company Number: 2005PV005358

PATIENT
  Age: 35 Year
  Sex: Female
  Weight: 75.8 kg

DRUGS (10)
  1. EXENATIDE (EXENATIDE)PEN, DISPOSABLE [Suspect]
     Indication: TYPE 2 DIABETES MELLITUS
     Dosage: 10, 5 UG, 2/D, SUBCUTANEOUS
     Route: 058
     Dates: start: 20050901, end: 20050101
  2. EXENATIDE (EXENATIDE)PEN, DISPOSABLE [Suspect]
     Indication: TYPE 2 DIABETES MELLITUS
     Dosage: 10, 5 UG, 2/D, SUBCUTANEOUS
     Route: 058
     Dates: start: 20050901, end: 20051001
  3. EXENATIDE (EXENATIDE)PEN, DISPOSABLE [Suspect]
     Indication: TYPE 2 DIABETES MELLITUS
     Dosage: 10, 5 UG, 2/D, SUBCUTANEOUS
     Route: 058
     Dates: start: 20050101
  4. EXENATIDE (EXENATIDE)PEN, DISPOSABLE [Suspect]
     Indication: TYPE 2 DIABETES MELLITUS
     Dosage: 10, 5 UG, 2/D, SUBCUTANEOUS
     Route: 058
     Dates: start: 20051001
  5. EXENATIDE (EXENATIDE)PEN, DISPOSABLE [Suspect]
  6. EXENATIDE PEN, DISPOSABLE DEVICE (EXENATIDE PEN) [Concomitant]
  7. METFORMIN HCL [Concomitant]
  8. BLOOD PRESSURE MEDICATION [Concomitant]
  9. CHOLESTEROL MEDICATION [Concomitant]
  10. STARLIX [Concomitant]

REACTIONS (2)
  - INJECTION SITE BRUISING [None]
  - INJECTION SITE EXTRAVASATION [None]
